FAERS Safety Report 6519670-7 (Version None)
Quarter: 2009Q4

REPORT INFORMATION
  Report Type: 
  Country: None (occurrence: None)
  Receive Date: 20091228
  Receipt Date: 20091216
  Transmission Date: 20100525
  Serious: Yes (Death, Hospitalization)
  Sender: FDA-Public Use
  Company Number: FR-PFIZER INC-2009313855

PATIENT
  Age: 84 Year
  Sex: Female

DRUGS (10)
  1. ATARAX [Suspect]
     Dosage: 12.5 MG, 1X/DAY
     Dates: end: 20091102
  2. SORIATANE [Suspect]
     Dosage: 25 MG, 1X/DAY
     Route: 048
     Dates: start: 20091027, end: 20091102
  3. PLAVIX [Suspect]
     Dosage: 75 MG, DAILY
     Route: 048
     Dates: end: 20091105
  4. EUPRESSYL [Suspect]
     Dosage: 30 MG, DAILY
     Route: 048
     Dates: end: 20091025
  5. DAFALGAN [Suspect]
     Dosage: UNK
     Dates: start: 20091027, end: 20091102
  6. ACTISKENAN [Suspect]
     Dosage: 30 MG, UNK
     Route: 048
     Dates: start: 20091030, end: 20091103
  7. VASELINE [Concomitant]
     Route: 061
  8. AERIUS [Concomitant]
     Dosage: 1 DF, ALTERNATE DAY
     Route: 048
  9. BETAMETHASONE DIPROPIONATE [Concomitant]
     Route: 061
  10. DIPROBASE, UNSPECIFIED [Concomitant]
     Route: 061

REACTIONS (8)
  - ACUTE HEPATIC FAILURE [None]
  - DECREASED APPETITE [None]
  - HYPERGLYCAEMIA [None]
  - HYPERKALAEMIA [None]
  - MULTI-ORGAN FAILURE [None]
  - PSORIASIS [None]
  - RENAL FAILURE [None]
  - THROMBOCYTOPENIA [None]
